FAERS Safety Report 5689068-2 (Version None)
Quarter: 2008Q1

REPORT INFORMATION
  Report Type: 
  Country: None (occurrence: None)
  Receive Date: 20080331
  Receipt Date: 20080325
  Transmission Date: 20080703
  Serious: Yes (Other)
  Sender: FDA-Public Use
  Company Number: B0514284A

PATIENT
  Age: 46 Year
  Sex: Female

DRUGS (2)
  1. SERETIDE [Suspect]
     Indication: ASTHMA
     Dosage: 50UG TWICE PER DAY
     Route: 055
     Dates: start: 20040401
  2. PAROXETINE HCL [Concomitant]
     Dosage: 20MG PER DAY
     Route: 048
     Dates: start: 19950101

REACTIONS (3)
  - CATARACT [None]
  - DYSPHONIA [None]
  - RETINAL DISORDER [None]
